FAERS Safety Report 21673724 (Version 5)
Quarter: 2023Q2

REPORT INFORMATION
  Report Type: Spontaneous
  Country: US (occurrence: US)
  Receive Date: 20221202
  Receipt Date: 20230524
  Transmission Date: 20230721
  Serious: No
  Sender: FDA-Public Use
  Company Number: US-PFIZER INC-PV202200114275

PATIENT
  Age: 63 Year
  Sex: Female

DRUGS (1)
  1. IBRANCE [Suspect]
     Active Substance: PALBOCICLIB
     Dosage: 125 MG, CYCLIC

REACTIONS (6)
  - White blood cell count decreased [Unknown]
  - Hypercalcaemia [Unknown]
  - Gastrooesophageal reflux disease [Unknown]
  - Hypoaesthesia oral [Unknown]
  - Cough [Unknown]
  - Dyspepsia [Unknown]
